FAERS Safety Report 24822359 (Version 3)
Quarter: 2025Q1

REPORT INFORMATION
  Report Type: Spontaneous
  Country: US (occurrence: US)
  Receive Date: 20250108
  Receipt Date: 20250324
  Transmission Date: 20250408
  Serious: Yes (Life-Threatening, Other)
  Sender: ENDO
  Company Number: US-ENDO USA, INC.-2024-051097

PATIENT
  Sex: Male

DRUGS (3)
  1. CLONAZEPAM [Suspect]
     Active Substance: CLONAZEPAM
     Indication: Seizure
     Route: 065
     Dates: start: 202410, end: 2024
  2. CLONAZEPAM [Suspect]
     Active Substance: CLONAZEPAM
     Indication: Dystonia
     Route: 065
     Dates: start: 202411, end: 2024
  3. CLONAZEPAM [Suspect]
     Active Substance: CLONAZEPAM
     Route: 065
     Dates: start: 2024, end: 2024

REACTIONS (10)
  - Oxygen saturation decreased [Recovering/Resolving]
  - Heart rate decreased [Recovering/Resolving]
  - Unresponsive to stimuli [Recovering/Resolving]
  - Lethargy [Recovering/Resolving]
  - Cardiac disorder [Recovering/Resolving]
  - Nervous system disorder [Recovering/Resolving]
  - Seizure [Recovering/Resolving]
  - Sedation [Recovering/Resolving]
  - Drug ineffective [Unknown]
  - Recalled product administered [Recovered/Resolved]

NARRATIVE: CASE EVENT DATE: 20240101
